FAERS Safety Report 10698570 (Version 1)
Quarter: 2014Q4

REPORT INFORMATION
  Report Type: Spontaneous
  Country: US (occurrence: None)
  Receive Date: 20141223
  Receipt Date: 20141223
  Transmission Date: 20150529
  Serious: No
  Sender: FDA-Public Use
  Company Number: 1000071164

PATIENT
  Age: 34 Year
  Sex: Female

DRUGS (7)
  1. XANAX [Concomitant]
     Active Substance: ALPRAZOLAM
  2. FLUCONAZOLE. [Concomitant]
     Active Substance: FLUCONAZOLE
  3. LEVAQUIN [Concomitant]
     Active Substance: LEVOFLOXACIN
  4. SERTRALINE [Concomitant]
     Active Substance: SERTRALINE HYDROCHLORIDE
  5. PERCOCET (OXYCODONE, ACETAMINOPHEN) [Concomitant]
  6. LINZESS [Suspect]
     Active Substance: LINACLOTIDE
     Indication: IMPAIRED GASTRIC EMPTYING
     Dates: start: 20140827
  7. PERCOCET (OXYCODONE, ACETAMINOPHEN) [Concomitant]

REACTIONS (2)
  - Nausea [None]
  - Off label use [None]

NARRATIVE: CASE EVENT DATE: 2014
